FAERS Safety Report 9337212 (Version 1)
Quarter: 2013Q2

REPORT INFORMATION
  Report Type: Spontaneous
  Country: FR (occurrence: FR)
  Receive Date: 20130607
  Receipt Date: 20130607
  Transmission Date: 20140414
  Serious: Yes (Hospitalization, Other)
  Sender: FDA-Public Use
  Company Number: FR-PFIZER INC-2013137879

PATIENT
  Age: 90 Year
  Sex: Female

DRUGS (4)
  1. ZOLOFT [Suspect]
     Dosage: 25 MG, 1X/DAY
     Route: 048
     Dates: start: 20120505
  2. MODOPAR [Suspect]
     Dosage: 50MG/12.5MG, 3X/DAY
     Route: 048
     Dates: start: 201208
  3. PRINIVIL [Concomitant]
     Dosage: UNK
  4. KARDEGIC [Concomitant]
     Dosage: UNK

REACTIONS (6)
  - Convulsion [Recovered/Resolved]
  - Loss of consciousness [Unknown]
  - Brain injury [Unknown]
  - Cerebral atrophy [Unknown]
  - Encephalopathy [Unknown]
  - Nervous system disorder [Unknown]
